FAERS Safety Report 4869330-3 (Version None)
Quarter: 2005Q4

REPORT INFORMATION
  Report Type: 
  Country: None (occurrence: None)
  Receive Date: 20051228
  Receipt Date: 20051228
  Transmission Date: 20060501
  Serious: Yes (Death, Hospitalization, Other)
  Sender: FDA-Public Use
  Company Number: None

PATIENT
  Sex: Male
  Weight: 115.2136 kg

DRUGS (16)
  1. DEMEROL [Suspect]
     Indication: PAIN
     Dosage: 30 MG EVERY 6' HOURS IV
     Route: 042
  2. DOPAMINE [Concomitant]
  3. TYLENOL [Concomitant]
  4. DIFLUCAN [Concomitant]
  5. VANCOMYCIN [Concomitant]
  6. COMBIVENT [Concomitant]
  7. D5W+NS+KCL [Concomitant]
  8. BICARB [Concomitant]
  9. SOLU-MEDROL [Concomitant]
  10. ELAVIL [Concomitant]
  11. DIGOXIN [Concomitant]
  12. LASIX [Concomitant]
  13. HALDOL [Concomitant]
  14. PREVACID [Concomitant]
  15. HEPARIN [Concomitant]
  16. INSULIN [Concomitant]

REACTIONS (1)
  - CARDIO-RESPIRATORY ARREST [None]
